FAERS Safety Report 24894898 (Version 1)
Quarter: 2025Q1

REPORT INFORMATION
  Report Type: Spontaneous
  Country: US (occurrence: US)
  Receive Date: 20250128
  Receipt Date: 20250128
  Transmission Date: 20250408
  Serious: Yes (Other)
  Sender: PFIZER
  Company Number: US-PFIZER INC-PV202500010368

PATIENT
  Age: 62 Year
  Sex: Male

DRUGS (1)
  1. NURTEC ODT [Suspect]
     Active Substance: RIMEGEPANT SULFATE
     Indication: Migraine
     Route: 048

REACTIONS (11)
  - Nephrolithiasis [Unknown]
  - Hallucination [Unknown]
  - Decreased appetite [Unknown]
  - Back pain [Unknown]
  - Headache [Unknown]
  - Dizziness [Unknown]
  - Tremor [Unknown]
  - Anxiety [Unknown]
  - Insomnia [Unknown]
  - Weight fluctuation [Unknown]
  - Dyspnoea exertional [Unknown]

NARRATIVE: CASE EVENT DATE: 20240101
